FAERS Safety Report 5820200-3 (Version None)
Quarter: 2008Q3

REPORT INFORMATION
  Report Type: 
  Country: None (occurrence: None)
  Receive Date: 20080724
  Receipt Date: 20080718
  Transmission Date: 20090109
  Serious: Yes (Other)
  Sender: FDA-Public Use
  Company Number: PHHY2008AR14585

PATIENT
  Age: 64 Year
  Sex: Female

DRUGS (1)
  1. DIOVAN [Suspect]
     Indication: HYPERTENSION
     Dosage: HALF A TABLET OF 160 MG
     Route: 048
     Dates: start: 20080529

REACTIONS (3)
  - DYSPNOEA [None]
  - PALPITATIONS [None]
  - SENSATION OF PRESSURE [None]
